FAERS Safety Report 8548691-8 (Version None)
Quarter: 2012Q3

REPORT INFORMATION
  Report Type: 
  Country: None (occurrence: None)
  Receive Date: 20120720
  Receipt Date: 20120720
  Transmission Date: 20120928
  Serious: Yes (Other)
  Sender: FDA-Public Use
  Company Number: None

PATIENT
  Sex: Female

DRUGS (2)
  1. CLOPIDOGREL BISULFATE [Suspect]
     Indication: CEREBROVASCULAR ACCIDENT
     Dosage: 75 MG ONCE A DAY PO
     Route: 048
     Dates: start: 20120627, end: 20120719
  2. CLOPIDOGREL BISULFATE [Suspect]
     Indication: MYOCARDIAL INFARCTION
     Dosage: 75 MG ONCE A DAY PO
     Route: 048
     Dates: start: 20120627, end: 20120719

REACTIONS (3)
  - NAIL DISORDER [None]
  - IMMUNE SYSTEM DISORDER [None]
  - INFECTED BITES [None]
